FAERS Safety Report 11329685 (Version 4)
Quarter: 2015Q4

REPORT INFORMATION
  Report Type: Spontaneous
  Country: US (occurrence: US)
  Receive Date: 20150803
  Receipt Date: 20151014
  Transmission Date: 20160304
  Serious: Yes (Other)
  Sender: FDA-Public Use
  Company Number: US-009507513-1507USA012685

PATIENT
  Sex: Female
  Weight: 126.8 kg

DRUGS (3)
  1. NEXPLANON [Suspect]
     Active Substance: ETONOGESTREL
     Dosage: 1 ROD/ 3 YEARS
     Route: 059
     Dates: start: 20150730
  2. DEPO-PROVERA [Concomitant]
     Active Substance: MEDROXYPROGESTERONE ACETATE
     Indication: CONTRACEPTION
     Dosage: 150MG/ML, PRN
     Dates: end: 20150730
  3. NEXPLANON [Suspect]
     Active Substance: ETONOGESTREL
     Dosage: 1 ROD/ 3 YEARS
     Route: 059
     Dates: start: 20130911, end: 20150730

REACTIONS (2)
  - Device breakage [Recovered/Resolved]
  - Menstruation irregular [Unknown]
